FAERS Safety Report 18254302 (Version 2)
Quarter: 2020Q4

REPORT INFORMATION
  Report Type: Spontaneous
  Country: US (occurrence: US)
  Receive Date: 20200911
  Receipt Date: 20201007
  Transmission Date: 20210113
  Serious: Yes (Hospitalization)
  Sender: FDA-Public Use
  Company Number: US-ROCHE-2674291

PATIENT
  Age: 10 Year
  Sex: Male

DRUGS (7)
  1. SIMETHICONE (DIMETHICONE) [Concomitant]
     Active Substance: DIMETHICONE
     Indication: ABDOMINAL DISTENSION
  2. ZOFRAN [Concomitant]
     Active Substance: ONDANSETRON HYDROCHLORIDE
  3. CLONIDINE. [Concomitant]
     Active Substance: CLONIDINE
     Indication: HYPERTENSION
     Dosage: PATCH
     Route: 062
  4. FLUCONAZOLE. [Concomitant]
     Active Substance: FLUCONAZOLE
  5. CELLCEPT [Suspect]
     Active Substance: MYCOPHENOLATE MOFETIL\MYCOPHENOLATE MOFETIL HYDROCHLORIDE
     Indication: BONE MARROW TRANSPLANT
     Dosage: LIQUID MEDICATION THROUGH NG TUBE ; THERAPY STATUS : ONGOING: NO?PATCH
     Route: 062
     Dates: start: 20200721, end: 20200905
  6. CYCLOSPORINE. [Concomitant]
     Active Substance: CYCLOSPORINE
     Indication: GRAFT VERSUS HOST DISEASE
  7. MAGNESIUM OXIDE. [Concomitant]
     Active Substance: MAGNESIUM OXIDE

REACTIONS (10)
  - Incontinence [Unknown]
  - Abdominal distension [Not Recovered/Not Resolved]
  - Swelling [Recovered/Resolved]
  - Ileus [Unknown]
  - Intentional product use issue [Unknown]
  - Off label use [Unknown]
  - Diarrhoea [Recovered/Resolved]
  - Rash [Recovered/Resolved]
  - Cytomegalovirus infection reactivation [Unknown]
  - Toxicity to various agents [Not Recovered/Not Resolved]

NARRATIVE: CASE EVENT DATE: 20200804
